FAERS Safety Report 9248261 (Version 1)
Quarter: 2013Q1

REPORT INFORMATION
  Report Type: Spontaneous
  Country: US (occurrence: None)
  Receive Date: 20130305
  Receipt Date: 20130305
  Transmission Date: 20140127
  Serious: Yes (Other)
  Sender: FDA-Public Use
  Company Number: 163-21880-12101018

PATIENT
  Age: 77 Year
  Sex: Male
  Weight: 78.02 kg

DRUGS (10)
  1. REVLIMID [Suspect]
     Indication: PLASMA CELL MYELOMA
     Route: 048
     Dates: start: 20080204
  2. ALLERGY TABLET (ANTIHISTAMINES) [Concomitant]
  3. ASPIRIN (ACETYLSALICYLIC ACID) [Concomitant]
  4. CYMBALTA (DULOXETINE HYDROCHLORIDE) [Concomitant]
  5. OSCAL WITH VITAMIN D (CALCIUM + VIT D) [Concomitant]
  6. PEPCID (FAMOTIDINE) [Concomitant]
  7. POTASSIUM (POTASSIUM) [Concomitant]
  8. VITAMIN B6 (PYRIDOXINE HYDROCHLORIDE) [Concomitant]
  9. VITAMIN B1 (THIAMINE HYDROCHLORIDE) [Concomitant]
  10. VITAMIN B12 (CYANOCOBALAMIN) [Concomitant]

REACTIONS (2)
  - Dermatitis bullous [None]
  - Rash generalised [None]
